FAERS Safety Report 8626827 (Version 3)
Quarter: 2014Q2

REPORT INFORMATION
  Report Type: Report from Study
  Country: GB (occurrence: GB)
  Receive Date: 20120620
  Receipt Date: 20140410
  Transmission Date: 20141212
  Serious: Yes (Death, Life-Threatening, Hospitalization, Other)
  Sender: FDA-Public Use
  Company Number: GB-BAYER-2012-059506

PATIENT
  Age: 69 Year
  Sex: Female
  Weight: 74 kg

DRUGS (11)
  1. BLINDED ACETYLSALICYLIC ACID({=100 MG) [Suspect]
     Dosage: 100 MG, QD
     Route: 048
     Dates: start: 20090924, end: 20101125
  2. BLINDED ACETYLSALICYLIC ACID({=100 MG) [Suspect]
     Dosage: 100 MG, QD
     Route: 048
     Dates: start: 20101126, end: 20110923
  3. BLINDED ACETYLSALICYLIC ACID({=100 MG) [Suspect]
     Dosage: 100 MG, QD
     Route: 048
     Dates: start: 20110924, end: 20120415
  4. DIAZEPAM [Concomitant]
     Indication: GENERALISED ANXIETY DISORDER
     Dosage: DAILY DOSE 5 MG
     Route: 048
     Dates: start: 1969
  5. BISOPROLOL [Concomitant]
     Indication: HYPERTENSION
     Dosage: DAILY DOSE 5 MG
     Route: 048
     Dates: start: 200312
  6. QUININE SULPHATE [Concomitant]
     Indication: MUSCLE SPASMS
     Dosage: DAILY DOSE 300 MG
     Route: 048
     Dates: start: 200904
  7. OESTROGEL [Concomitant]
     Indication: VULVOVAGINAL DRYNESS
     Dosage: 0.06 %, UNK
     Route: 061
     Dates: start: 20111125
  8. VAGIFEM [Concomitant]
     Indication: VULVOVAGINAL DRYNESS
     Dosage: 25 ?G, OW
     Route: 067
     Dates: start: 20110128
  9. FLUCLOXACILLIN [Concomitant]
     Indication: BREAST ABSCESS
     Dosage: DAILY DOSE 2000 MG
     Route: 048
     Dates: start: 20120117, end: 20120118
  10. IBUPROFEN [Concomitant]
     Indication: MYALGIA
     Dosage: UNK UNK, PRN
     Route: 061
     Dates: start: 20120201, end: 20120207
  11. AMOXICILLIN [Concomitant]
     Indication: COUGH
     Dosage: DAILY DOSE 1500 MG
     Route: 048
     Dates: start: 20120314, end: 20120321

REACTIONS (2)
  - Ischaemic stroke [Recovered/Resolved]
  - Small cell lung cancer [Fatal]
